FAERS Safety Report 6650113-9 (Version None)
Quarter: 2010Q1

REPORT INFORMATION
  Report Type: 
  Country: None (occurrence: None)
  Receive Date: 20100322
  Receipt Date: 20100304
  Transmission Date: 20100710
  Serious: Yes (Other)
  Sender: FDA-Public Use
  Company Number: DSA_42783_2010

PATIENT
  Sex: Male

DRUGS (7)
  1. BUPROPION HCL [Suspect]
     Indication: DEPRESSION
     Dosage: 150 MG TRANSPLACENTAL, (150 MG TRANSPLACENTAL)
     Route: 064
     Dates: start: 20090101, end: 20091009
  2. BUPROPION HCL [Suspect]
     Indication: DEPRESSION
     Dosage: 150 MG TRANSPLACENTAL, (150 MG TRANSPLACENTAL)
     Route: 064
     Dates: start: 20091201
  3. VENLAFAXINE HYDROCHLORIDE [Concomitant]
  4. PROMETHAZINE [Concomitant]
  5. OXAZEPAM [Concomitant]
  6. ZOLPIDEM [Concomitant]
  7. CINOLAXEPAM [Concomitant]

REACTIONS (3)
  - CAESAREAN SECTION [None]
  - MATERNAL DRUGS AFFECTING FOETUS [None]
  - NEONATAL ASPHYXIA [None]
